FAERS Safety Report 11911307 (Version 9)
Quarter: 2016Q2

REPORT INFORMATION
  Report Type: Spontaneous
  Country: ES (occurrence: ES)
  Receive Date: 20160112
  Receipt Date: 20160610
  Transmission Date: 20160815
  Serious: Yes (Life-Threatening, Hospitalization, Other)
  Sender: FDA-Public Use
  Company Number: ES-TAKEDA-2016MPI000026

PATIENT
  Age: 79 Year
  Sex: Male
  Weight: 100 kg

DRUGS (72)
  1. VELCADE [Suspect]
     Active Substance: BORTEZOMIB
     Dosage: 2.85 MG, UNK
     Route: 058
     Dates: start: 20150502
  2. MELPHALAN [Suspect]
     Active Substance: MELPHALAN
     Dosage: 18 MG, UNK
     Route: 048
     Dates: start: 20160405, end: 20160408
  3. PARACETAMOL [Concomitant]
     Active Substance: ACETAMINOPHEN
     Indication: MALAISE
     Dosage: 1 G, UNK
     Route: 048
  4. ENOXAPARIN [Concomitant]
     Active Substance: ENOXAPARIN
     Dosage: 60 MG, UNK
     Route: 058
     Dates: start: 20160127, end: 20160129
  5. OMEPRAZOLE. [Concomitant]
     Active Substance: OMEPRAZOLE
     Dosage: 40 MG, UNK
     Route: 042
     Dates: start: 20160127, end: 20160129
  6. LEVOFLOXACIN. [Concomitant]
     Active Substance: LEVOFLOXACIN
     Indication: URINARY TRACT OBSTRUCTION
     Dosage: 500 MG, UNK
     Route: 048
     Dates: start: 20150129, end: 20160210
  7. LEVOFLOXACIN. [Concomitant]
     Active Substance: LEVOFLOXACIN
     Indication: URINARY TRACT INFECTION
     Dosage: 500 MG, UNK
     Route: 048
     Dates: start: 20151231, end: 20160104
  8. LEVOFLOXACIN. [Concomitant]
     Active Substance: LEVOFLOXACIN
     Dosage: 500 MG, UNK
     Route: 042
     Dates: start: 20160127, end: 20160128
  9. FOLIC ACID. [Concomitant]
     Active Substance: FOLIC ACID
     Indication: VITAMIN SUPPLEMENTATION
     Dosage: 10 MG, BID
     Route: 048
     Dates: start: 20160208
  10. ADIRO [Concomitant]
     Active Substance: ASPIRIN
     Indication: THROMBOSIS PROPHYLAXIS
     Dosage: 100 MG, UNK
     Route: 048
     Dates: start: 20160208
  11. VELCADE [Suspect]
     Active Substance: BORTEZOMIB
     Dosage: 2.85 UNK, UNK
     Route: 058
     Dates: start: 20150518
  12. VELCADE [Suspect]
     Active Substance: BORTEZOMIB
     Dosage: 2.85 UNK, UNK
     Route: 058
     Dates: start: 20151221, end: 20160125
  13. PREDNISONE. [Suspect]
     Active Substance: PREDNISONE
     Indication: PLASMA CELL MYELOMA
     Dosage: 130 MG, UNK
     Route: 048
     Dates: start: 20151222, end: 20151224
  14. DARATUMUMAB [Suspect]
     Active Substance: DARATUMUMAB
     Indication: PLASMA CELL MYELOMA
     Dosage: 1600 MG, 1/WEEK
     Route: 042
     Dates: start: 20151221, end: 20160125
  15. VANDRAL [Concomitant]
     Active Substance: VENLAFAXINE HYDROCHLORIDE
     Indication: DEPRESSION
     Dosage: 225 MG, UNK
     Route: 048
     Dates: start: 20151226
  16. VANDRAL [Concomitant]
     Active Substance: VENLAFAXINE HYDROCHLORIDE
     Dosage: 75 MG, UNK
     Route: 048
     Dates: start: 20151227, end: 20151229
  17. SULFAMETOXAZOL [Concomitant]
     Active Substance: SULFAMETHOXAZOLE
     Indication: INFECTION PROPHYLAXIS
     Dosage: 800 MG, 2/WEEK
     Route: 048
     Dates: start: 20160208
  18. IPRATROPIUM BROMIDE. [Concomitant]
     Active Substance: IPRATROPIUM BROMIDE
     Dosage: 250 ?G, TID
     Route: 055
     Dates: start: 20160201, end: 20160203
  19. FITOMENADIONA [Concomitant]
     Indication: SEPSIS
     Dosage: 10 MG, TID
     Route: 042
     Dates: start: 20160128, end: 20160129
  20. DARATUMUMAB [Suspect]
     Active Substance: DARATUMUMAB
     Dosage: 1600 MG, 1/WEEK
     Route: 042
  21. PARACETAMOL [Concomitant]
     Active Substance: ACETAMINOPHEN
     Indication: URINARY TRACT INFECTION
  22. ENOXAPARIN [Concomitant]
     Active Substance: ENOXAPARIN
     Dosage: 60 MG, UNK
     Route: 058
     Dates: start: 20160131, end: 20160204
  23. ONDANSETRON [Concomitant]
     Active Substance: ONDANSETRON
     Indication: VOMITING
     Dosage: 8 MG, Q8HR
     Route: 065
  24. ONDANSETRON [Concomitant]
     Active Substance: ONDANSETRON
     Indication: NAUSEA
  25. SALBUTAMOL [Concomitant]
     Active Substance: ALBUTEROL
     Indication: SEPSIS
     Dosage: UNK UNK, TID
     Route: 048
     Dates: start: 20160111, end: 20160118
  26. LEVOFLOXACIN. [Concomitant]
     Active Substance: LEVOFLOXACIN
     Indication: SEPSIS
     Dosage: 500 MG, UNK
     Route: 042
     Dates: start: 20151227, end: 20151228
  27. MELPHALAN [Suspect]
     Active Substance: MELPHALAN
     Indication: PLASMA CELL MYELOMA
     Dosage: 18 MG, UNK
     Route: 048
     Dates: start: 20151221, end: 20151224
  28. PARACETAMOL [Concomitant]
     Active Substance: ACETAMINOPHEN
     Indication: PYREXIA
     Dosage: 1 G, TID
     Route: 042
     Dates: start: 20160127, end: 20160130
  29. ACYCLOVIR                          /00587301/ [Concomitant]
     Active Substance: ACYCLOVIR
     Indication: PROPHYLAXIS
     Dosage: 400 MG, BID
     Route: 048
     Dates: start: 20151221
  30. METOCLOPRAMIDE. [Concomitant]
     Active Substance: METOCLOPRAMIDE
     Indication: VOMITING
     Dosage: 10 MG, Q8HR
     Route: 065
  31. LOPERAMIDE [Concomitant]
     Active Substance: LOPERAMIDE
     Indication: DIARRHOEA
     Dosage: 2 MG, UNK
     Route: 065
  32. SALBUTAMOL [Concomitant]
     Active Substance: ALBUTEROL
     Indication: BRONCHITIS
     Dosage: 2.5 MG, QID
     Route: 048
     Dates: start: 20160127, end: 20160201
  33. IMIPENEM [Concomitant]
     Active Substance: IMIPENEM
     Dosage: 500 MG, QID
     Route: 042
     Dates: start: 20160129, end: 20160201
  34. CILASTATIN [Concomitant]
     Active Substance: CILASTATIN
     Dosage: 1000 MG, TID
     Route: 042
     Dates: start: 20160201, end: 20160204
  35. AMIKACIN [Concomitant]
     Active Substance: AMIKACIN
     Indication: SEPSIS
     Dosage: 500 MG, UNK
     Route: 042
     Dates: start: 20160127, end: 20160129
  36. VELCADE [Suspect]
     Active Substance: BORTEZOMIB
     Dosage: 2.85 MG, UNK
     Route: 058
     Dates: start: 20150301
  37. VELCADE [Suspect]
     Active Substance: BORTEZOMIB
     Dosage: 2.85 MG, UNK
     Route: 058
     Dates: start: 20150315
  38. VELCADE [Suspect]
     Active Substance: BORTEZOMIB
     Dosage: 2.85 MG, UNK
     Route: 058
     Dates: start: 20150425
  39. VITAMIN D3 [Concomitant]
     Active Substance: CHOLECALCIFEROL
     Indication: HYPERCALCAEMIA
     Dosage: 880 IU, UNK
     Route: 048
     Dates: start: 20151221
  40. TRIMETOPRIMA [Concomitant]
     Indication: INFECTION PROPHYLAXIS
     Dosage: 160 MG, 2/WEEK
     Route: 048
     Dates: start: 20160208
  41. CILASTATIN [Concomitant]
     Active Substance: CILASTATIN
     Indication: SEPSIS
     Dosage: 1000 MG, QID
     Route: 042
     Dates: start: 20160127, end: 20160129
  42. IPRATROPIUM BROMIDE. [Concomitant]
     Active Substance: IPRATROPIUM BROMIDE
     Indication: SEPSIS
     Dosage: 250 ?G, QID
     Route: 055
     Dates: start: 20160127, end: 20160201
  43. VELCADE [Suspect]
     Active Substance: BORTEZOMIB
     Dosage: 2.85 MG, UNK
     Route: 058
     Dates: start: 20150404
  44. VELCADE [Suspect]
     Active Substance: BORTEZOMIB
     Dosage: 2.85 MG, UNK
     Route: 058
     Dates: start: 20150411
  45. PARACETAMOL [Concomitant]
     Active Substance: ACETAMINOPHEN
     Indication: MUSCULOSKELETAL PAIN
  46. ENOXAPARIN [Concomitant]
     Active Substance: ENOXAPARIN
     Dosage: 40 MG, UNK
     Route: 058
     Dates: start: 20160129, end: 20160131
  47. OMEPRAZOLE. [Concomitant]
     Active Substance: OMEPRAZOLE
     Indication: GASTROINTESTINAL DISORDER THERAPY
     Dosage: 40 MG, UNK
     Route: 042
     Dates: start: 20151227, end: 20151228
  48. METOCLOPRAMIDE. [Concomitant]
     Active Substance: METOCLOPRAMIDE
     Indication: NAUSEA
  49. CEFUROXIMA APOTEX [Concomitant]
     Indication: BRONCHITIS
     Dosage: 500 MG, BID
     Route: 048
     Dates: start: 20160110, end: 20160117
  50. LEVOFLOXACIN. [Concomitant]
     Active Substance: LEVOFLOXACIN
     Dosage: 500 MG, UNK
     Route: 042
     Dates: start: 20160128, end: 20160129
  51. ZOMETA [Concomitant]
     Active Substance: ZOLEDRONIC ACID
     Indication: HYPERCALCAEMIA
     Dosage: 4 MG, UNK
     Route: 042
     Dates: start: 20160215
  52. OMEPRAZOLE. [Concomitant]
     Active Substance: OMEPRAZOLE
     Dosage: 20 MG, UNK
     Route: 048
     Dates: start: 20160129, end: 20160204
  53. AMOXICILLIN. [Concomitant]
     Active Substance: AMOXICILLIN
     Indication: URINARY TRACT INFECTION
     Dosage: 875 MG, TID
     Route: 048
     Dates: start: 20151221, end: 20160104
  54. AMOXICILLIN. [Concomitant]
     Active Substance: AMOXICILLIN
     Dosage: 1 G, TID
     Route: 042
     Dates: start: 20151227, end: 20151230
  55. CLAVULANIC ACID [Concomitant]
     Active Substance: CLAVULANIC ACID
     Dosage: 200 MG, TID
     Route: 042
     Dates: start: 20151227, end: 20151230
  56. IMIPENEM [Concomitant]
     Active Substance: IMIPENEM
     Indication: SEPSIS
     Dosage: 1000 MG, QID
     Route: 042
     Dates: start: 20160127, end: 20160129
  57. IMIPENEM [Concomitant]
     Active Substance: IMIPENEM
     Dosage: 100 MG, TID
     Route: 042
     Dates: start: 20160201, end: 20160204
  58. CILASTATIN [Concomitant]
     Active Substance: CILASTATIN
     Dosage: 500 MG, QID
     Dates: start: 20160129, end: 20160201
  59. OXYGEN. [Concomitant]
     Active Substance: OXYGEN
     Indication: SEPSIS
     Dosage: 2000 ML, TID
     Route: 055
     Dates: start: 20160127, end: 20160131
  60. VELCADE [Suspect]
     Active Substance: BORTEZOMIB
     Indication: PLASMA CELL MYELOMA
     Dosage: 2.85 MG, UNK
     Route: 058
     Dates: start: 20150223
  61. MELPHALAN [Suspect]
     Active Substance: MELPHALAN
     Dosage: 18 MG, UNK
     Route: 048
     Dates: start: 20160302, end: 20160305
  62. PARACETAMOL [Concomitant]
     Active Substance: ACETAMINOPHEN
     Indication: INFLUENZA LIKE ILLNESS
     Dosage: 1 G, TID
     Route: 048
     Dates: start: 20151224, end: 20151227
  63. PARACETAMOL [Concomitant]
     Active Substance: ACETAMINOPHEN
     Indication: CHILLS
     Dosage: 1 G, TID
     Route: 042
     Dates: start: 20151227, end: 20151228
  64. PARACETAMOL [Concomitant]
     Active Substance: ACETAMINOPHEN
     Indication: SEPSIS
  65. VITAMIN D3 [Concomitant]
     Active Substance: CHOLECALCIFEROL
     Dosage: 1000 MG, UNK
     Route: 048
     Dates: start: 20151221
  66. CALCIUM [Concomitant]
     Active Substance: CALCIUM
     Indication: HYPERCALCAEMIA
     Dosage: 1000 MG, UNK
     Route: 048
     Dates: start: 20151221
  67. ENOXAPARIN [Concomitant]
     Active Substance: ENOXAPARIN
     Indication: PROPHYLAXIS
     Dosage: 60 MG, UNK
     Route: 058
     Dates: start: 20151227, end: 20151228
  68. ALOPURINOL [Concomitant]
     Active Substance: ALLOPURINOL
     Indication: HYPERURICAEMIA
     Dosage: 300 MG, UNK
     Route: 048
     Dates: start: 20151130
  69. VANDRAL [Concomitant]
     Active Substance: VENLAFAXINE HYDROCHLORIDE
     Dosage: 150 MG, UNK
     Route: 048
     Dates: start: 20151230
  70. CLAVULANIC ACID [Concomitant]
     Active Substance: CLAVULANIC ACID
     Indication: URINARY TRACT INFECTION
     Dosage: 125 MG, UNK
     Route: 048
     Dates: start: 20151221, end: 20160104
  71. METAMIZOLE [Concomitant]
     Active Substance: METAMIZOLE
     Indication: URINARY TRACT INFECTION
     Dosage: 2 G, TID
     Route: 042
     Dates: start: 20151227, end: 20151228
  72. FITOMENADIONA [Concomitant]
     Dosage: 20 MG, BID
     Route: 042
     Dates: start: 20160129, end: 20160201

REACTIONS (17)
  - Urinary tract obstruction [Unknown]
  - Benign prostatic hyperplasia [Unknown]
  - Septic shock [Unknown]
  - Hyponatraemia [Unknown]
  - Acute kidney injury [Recovered/Resolved]
  - Pneumonia [Recovered/Resolved]
  - Sepsis [Recovered/Resolved]
  - Superinfection [Unknown]
  - Oedema peripheral [Unknown]
  - Platelet count decreased [Unknown]
  - Bronchitis [Unknown]
  - Coagulopathy [Unknown]
  - Anaemia [Unknown]
  - Urinary tract infection [Recovered/Resolved]
  - Pyrexia [Unknown]
  - Phlebitis [Unknown]
  - Sinus disorder [Unknown]

NARRATIVE: CASE EVENT DATE: 20151227
